FAERS Safety Report 15857040 (Version 2)
Quarter: 2019Q1

REPORT INFORMATION
  Report Type: Spontaneous
  Country: KR (occurrence: KR)
  Receive Date: 20190123
  Receipt Date: 20190205
  Transmission Date: 20190417
  Serious: Yes (Other)
  Sender: FDA-Public Use
  Company Number: PHHY2019KR012777

PATIENT
  Age: 12 Year
  Sex: Male

DRUGS (1)
  1. EVEROLIMUS. [Suspect]
     Active Substance: EVEROLIMUS
     Indication: ASTROCYTOMA, LOW GRADE
     Dosage: UNK
     Route: 048
     Dates: start: 201602

REACTIONS (4)
  - Crohn^s disease [Unknown]
  - Mouth ulceration [Unknown]
  - Abdominal pain lower [Unknown]
  - Oesophageal ulcer [Unknown]
